FAERS Safety Report 13192332 (Version 1)
Quarter: 2017Q1

REPORT INFORMATION
  Report Type: Spontaneous
  Country: US (occurrence: US)
  Receive Date: 20170206
  Receipt Date: 20170206
  Transmission Date: 20170428
  Serious: Yes (Death)
  Sender: FDA-Public Use
  Company Number: None

PATIENT
  Age: 46 Year
  Sex: Male
  Weight: 89.6 kg

DRUGS (2)
  1. BORTEZOMIB LAST DOSE 9/5/13 2.7 MG MILLENIUM PHARMACEUTICALS [Suspect]
     Active Substance: BORTEZOMIB
     Indication: RENAL CANCER STAGE IV
     Dosage: D1; 4; 8; 11
     Route: 042
     Dates: start: 20130715, end: 20130905
  2. BEVACIZUMAB LAST DOSE 8/26/13 1448 MG GENENTECH [Suspect]
     Active Substance: BEVACIZUMAB
     Indication: RENAL CANCER STAGE IV
     Dosage: D1 Q 21 DAYS
     Route: 042
     Dates: start: 20130715, end: 20130826

REACTIONS (3)
  - Performance status decreased [None]
  - Malignant neoplasm progression [None]
  - Renal cancer stage IV [None]

NARRATIVE: CASE EVENT DATE: 20130930
